FAERS Safety Report 5380995-2 (Version None)
Quarter: 2007Q3

REPORT INFORMATION
  Report Type: 
  Country: None (occurrence: None)
  Receive Date: 20070702
  Receipt Date: 20060605
  Transmission Date: 20080115
  Serious: Yes (Hospitalization)
  Sender: FDA-Public Use
  Company Number: PROG00206001839

PATIENT
  Sex: Female
  Weight: 54.5 kg

DRUGS (5)
  1. PROMETRIUM [Suspect]
     Indication: AMENORRHOEA
     Dosage: SEE IMAGE
     Route: 048
     Dates: start: 20060601, end: 20060602
  2. PROMETRIUM [Suspect]
     Indication: AMENORRHOEA
     Dosage: SEE IMAGE
     Route: 048
     Dates: start: 20020101
  3. PERCOCET [Suspect]
     Indication: PAIN
     Dosage: 325 MILLIGRAM(S) BID ORAL DAILY DOSE: 10/650 MILLIGRAM(S) TWICE DAILY
     Route: 048
  4. XANAX [Suspect]
     Indication: ANXIETY DISORDER
     Dosage: 0.5 MILLIGRAM(S) TID ORAL DAILY DOSE: 1.5 MILLIGRAM(S)
     Route: 048
  5. DILAUDID [Suspect]
     Indication: PAIN

REACTIONS (2)
  - DIZZINESS [None]
  - LOSS OF CONSCIOUSNESS [None]
